FAERS Safety Report 7849874-2 (Version None)
Quarter: 2011Q4

REPORT INFORMATION
  Report Type: 
  Country: None (occurrence: None)
  Receive Date: 20111025
  Receipt Date: 20111025
  Transmission Date: 20120403
  Serious: Yes (Hospitalization)
  Sender: FDA-Public Use
  Company Number: None

PATIENT
  Sex: Male
  Weight: 80.3 kg

DRUGS (1)
  1. ERBITUX [Suspect]
     Dosage: 2731 MG

REACTIONS (1)
  - ENDOTRACHEAL INTUBATION [None]
